FAERS Safety Report 10215651 (Version 1)
Quarter: 2014Q2

REPORT INFORMATION
  Report Type: Spontaneous
  Country: UY (occurrence: UY)
  Receive Date: 20140604
  Receipt Date: 20140604
  Transmission Date: 20141212
  Serious: Yes (Other)
  Sender: FDA-Public Use
  Company Number: UY-PFIZER INC-2014151192

PATIENT
  Sex: 0

DRUGS (1)
  1. XALKORI [Suspect]

REACTIONS (3)
  - Renal haematoma [Unknown]
  - Perinephritis [Unknown]
  - Renal failure [Unknown]
